FAERS Safety Report 4394105-1 (Version None)
Quarter: 2004Q3

REPORT INFORMATION
  Report Type: 
  Country: None (occurrence: None)
  Receive Date: 20040708
  Receipt Date: 20040708
  Transmission Date: 20050211
  Serious: Yes (Life-Threatening, Hospitalization)
  Sender: FDA-Public Use
  Company Number: None

PATIENT
  Age: 56 Year
  Sex: Female
  Weight: 68.49 kg

DRUGS (1)
  1. TORADOL [Suspect]
     Indication: PAIN
     Dosage: 30 MG Q 6 HOURS INTRAVENOUS
     Route: 042
     Dates: start: 20040618, end: 20040621

REACTIONS (8)
  - ACUTE RESPIRATORY FAILURE [None]
  - CATHETER RELATED COMPLICATION [None]
  - CATHETER SITE DISCHARGE [None]
  - HAEMOGLOBIN DECREASED [None]
  - LABORATORY TEST ABNORMAL [None]
  - POST PROCEDURAL HAEMORRHAGE [None]
  - RECTAL HAEMORRHAGE [None]
  - VON WILLEBRAND'S FACTOR MULTIMERS ABNORMAL [None]
